FAERS Safety Report 7602509-6 (Version None)
Quarter: 2011Q3

REPORT INFORMATION
  Report Type: 
  Country: None (occurrence: None)
  Receive Date: 20110701
  Receipt Date: 20110622
  Transmission Date: 20111222
  Serious: Yes (Death, Hospitalization, Other)
  Sender: FDA-Public Use
  Company Number: 2010AC000337

PATIENT
  Age: 76 Year
  Sex: Male

DRUGS (22)
  1. DIGOXIN [Suspect]
     Dosage: 0.125 MG;M,W,F,;PO
     Route: 048
     Dates: start: 20070101, end: 20080501
  2. NITROGLYCERIN [Concomitant]
  3. MECLIZINE [Concomitant]
  4. HECTORAL [Concomitant]
  5. METOCLOPRAMIDE [Concomitant]
  6. COREG [Concomitant]
  7. ASPIRIN [Concomitant]
  8. LOVENOX [Concomitant]
  9. DIGOXIN [Suspect]
     Dosage: 0.125 MG;QD;PO
     Route: 048
     Dates: start: 20060301, end: 20070101
  10. PLAVIX [Concomitant]
  11. VANCOMYCIN [Concomitant]
  12. LIPITOR [Concomitant]
  13. IMDUR [Concomitant]
  14. CALCITRIOL [Concomitant]
  15. COUMADIN [Concomitant]
  16. METOPROLOL TARTRATE [Concomitant]
  17. PHOSLO [Concomitant]
  18. COLACE [Concomitant]
  19. REGULAR INSULIN [Concomitant]
  20. REGLAN [Concomitant]
  21. LISINOPRIL [Concomitant]
  22. EPOGEN [Concomitant]

REACTIONS (19)
  - PALPITATIONS [None]
  - MITRAL VALVE INCOMPETENCE [None]
  - STAPHYLOCOCCAL INFECTION [None]
  - HYPERGLYCAEMIA [None]
  - DIARRHOEA [None]
  - HYPERHIDROSIS [None]
  - LEUKOCYTOSIS [None]
  - AORTIC STENOSIS [None]
  - ACUTE MYOCARDIAL INFARCTION [None]
  - ANXIETY [None]
  - BACTERAEMIA [None]
  - CARDIAC ARREST [None]
  - HEART INJURY [None]
  - CORONARY ARTERY OCCLUSION [None]
  - REFUSAL OF TREATMENT BY PATIENT [None]
  - PAIN [None]
  - NAUSEA [None]
  - HYPOTENSION [None]
  - CARDIOACTIVE DRUG LEVEL ABOVE THERAPEUTIC [None]
